FAERS Safety Report 5125463-8 (Version None)
Quarter: 2006Q3

REPORT INFORMATION
  Report Type: 
  Country: None (occurrence: None)
  Receive Date: 20060822
  Receipt Date: 20060510
  Transmission Date: 20061208
  Serious: No
  Sender: FDA-Public Use
  Company Number: PHEH2006US06173

PATIENT
  Age: 85 Year
  Sex: Male

DRUGS (6)
  1. ENABLEX [Suspect]
     Indication: HYPERTONIC BLADDER
     Dosage: 15 MG, QD, ORAL
     Route: 048
     Dates: start: 20060503
  2. LEXAPRO [Concomitant]
  3. LIPITOR [Concomitant]
  4. COUMADIN [Concomitant]
  5. ENALAPRIL MALEATE [Concomitant]
  6. IRON (IRON) [Concomitant]

REACTIONS (1)
  - CHROMATURIA [None]
